FAERS Safety Report 5671031-9 (Version None)
Quarter: 2008Q1

REPORT INFORMATION
  Report Type: 
  Country: None (occurrence: None)
  Receive Date: 20080313
  Receipt Date: 20080228
  Transmission Date: 20080703
  Serious: Yes (Death, Hospitalization)
  Sender: FDA-Public Use
  Company Number: 2008S1003450

PATIENT
  Age: 66 Year
  Sex: Male
  Weight: 71.6683 kg

DRUGS (4)
  1. HALOPERIDOL [Suspect]
     Indication: AGGRESSION
     Dosage: 5 MG; TWICE A DAY; ORAL
     Route: 048
     Dates: start: 20080201, end: 20080220
  2. HALOPERIDOL [Suspect]
     Indication: DEMENTIA
     Dosage: 5 MG; TWICE A DAY; ORAL
     Route: 048
     Dates: start: 20080201, end: 20080220
  3. QUETIAPINE FUMARATE [Concomitant]
  4. DEPAKOTE [Concomitant]

REACTIONS (3)
  - GENERAL PHYSICAL HEALTH DETERIORATION [None]
  - LOSS OF CONSCIOUSNESS [None]
  - NEUROLEPTIC MALIGNANT SYNDROME [None]
